FAERS Safety Report 7099950-X (Version None)
Quarter: 2010Q4

REPORT INFORMATION
  Report Type: 
  Country: None (occurrence: None)
  Receive Date: 20101104
  Receipt Date: 20100730
  Transmission Date: 20110411
  Serious: No
  Sender: FDA-Public Use
  Company Number: USA/USA/10/0014882

PATIENT
  Sex: Male

DRUGS (1)
  1. OMEPRAZOLE [Suspect]
     Indication: PRODUCT USED FOR UNKNOWN INDICATION
     Dosage: 20 MG

REACTIONS (4)
  - ERYTHEMA [None]
  - FLUSHING [None]
  - PRODUCT SUBSTITUTION ISSUE [None]
  - PRURITUS [None]
